FAERS Safety Report 7783235-X (Version None)
Quarter: 2011Q3

REPORT INFORMATION
  Report Type: 
  Country: None (occurrence: None)
  Receive Date: 20110928
  Receipt Date: 20110923
  Transmission Date: 20111222
  Serious: Yes (Death)
  Sender: FDA-Public Use
  Company Number: US-SANOFI-AVENTIS-2011SA062666

PATIENT
  Age: 80 Year
  Sex: Female

DRUGS (4)
  1. DILAUDID [Concomitant]
     Indication: PAIN
     Dosage: 1 TABLET EVERY 6 HOURS AS NEEDED
     Dates: end: 20110920
  2. TRAMADOL [Concomitant]
     Indication: PAIN
     Dosage: ONE TABLET EVERY 6 HOURS AS NEEDED
     Dates: end: 20110920
  3. PREDNISONE [Concomitant]
     Dates: end: 20110920
  4. LOVENOX [Suspect]
     Indication: THROMBOSIS PROPHYLAXIS
     Route: 065
     Dates: start: 20110501, end: 20110920

REACTIONS (1)
  - LUNG NEOPLASM MALIGNANT [None]
